FAERS Safety Report 7042330-3 (Version None)
Quarter: 2010Q4

REPORT INFORMATION
  Report Type: 
  Country: None (occurrence: None)
  Receive Date: 20101013
  Receipt Date: 20091117
  Transmission Date: 20110411
  Serious: No
  Sender: FDA-Public Use
  Company Number: US-ASTRAZENECA-2009SE27031

PATIENT
  Age: 68 Year
  Sex: Female
  Weight: 63.5 kg

DRUGS (2)
  1. SYMBICORT [Suspect]
     Dosage: 160/4.5, 2 PUFFS BID
     Route: 055
     Dates: start: 20090401, end: 20090401
  2. SYMBICORT [Suspect]
     Dosage: 160/4.5, 2 PUFFS ONCE A DAY
     Route: 055
     Dates: start: 20090401

REACTIONS (2)
  - FEELING JITTERY [None]
  - HEADACHE [None]
